FAERS Safety Report 6604139-1 (Version None)
Quarter: 2010Q1

REPORT INFORMATION
  Report Type: 
  Country: None (occurrence: None)
  Receive Date: 20100226
  Receipt Date: 20090608
  Transmission Date: 20100710
  Serious: No
  Sender: FDA-Public Use
  Company Number: A0789397A

PATIENT
  Age: 46 Year
  Sex: Female

DRUGS (16)
  1. LAMICTAL CD [Suspect]
     Indication: BIPOLAR DISORDER
     Dosage: 200MG PER DAY
     Route: 048
     Dates: start: 20081101
  2. MUCINEX [Concomitant]
  3. ZOLOFT [Concomitant]
  4. ZANTAC [Concomitant]
  5. TUMS [Concomitant]
  6. LITHIUM [Concomitant]
  7. PROTONIX [Concomitant]
  8. SYNTHROID [Concomitant]
  9. VALTREX [Concomitant]
  10. TRAZODONE HCL [Concomitant]
  11. AVIANE-28 [Concomitant]
  12. FLONASE [Concomitant]
  13. METOPROLOL TARTRATE [Concomitant]
  14. MIRALAX [Concomitant]
  15. IMITREX [Concomitant]
  16. TYLENOL (CAPLET) [Concomitant]

REACTIONS (3)
  - COUGH [None]
  - HEADACHE [None]
  - PHOTOSENSITIVITY REACTION [None]
